FAERS Safety Report 18520618 (Version 1)
Quarter: 2020Q4

REPORT INFORMATION
  Report Type: Spontaneous
  Country: GB (occurrence: GB)
  Receive Date: 20201119
  Receipt Date: 20201119
  Transmission Date: 20210114
  Serious: Yes (Other)
  Sender: FDA-Public Use
  Company Number: GB-AUROBINDO-AUR-APL-2011-05730

PATIENT
  Age: 70 Year
  Sex: Female

DRUGS (7)
  1. VERAPAMIL [Suspect]
     Active Substance: VERAPAMIL HYDROCHLORIDE
     Indication: ATRIAL FIBRILLATION
     Dosage: UNK
     Route: 065
  2. SULPHADIMIDINE [Concomitant]
     Indication: PRODUCT USED FOR UNKNOWN INDICATION
  3. LOSARTAN POTASSIUM FILM-COATED TABLETS 25MG [Suspect]
     Active Substance: LOSARTAN POTASSIUM
     Dosage: 25 MILLIGRAM, DAILY
     Dates: start: 20110922
  4. LOSARTAN POTASSIUM FILM-COATED TABLETS 25MG [Suspect]
     Active Substance: LOSARTAN POTASSIUM
     Dosage: 50 MILLIGRAM, DAILY
  5. PETHIDINE [Concomitant]
     Active Substance: MEPERIDINE
     Indication: PRODUCT USED FOR UNKNOWN INDICATION
     Dosage: UNK UNK,UNK,
     Route: 065
  6. LOSARTAN POTASSIUM FILM-COATED TABLETS 25MG [Suspect]
     Active Substance: LOSARTAN POTASSIUM
     Indication: HYPERTENSION
     Dosage: 12.5 MILLIGRAM, DAILY
     Route: 048
     Dates: start: 20110907
  7. LISINOPRIL TABLETS 5 MG (LISINOPRIL) TABLET, 5 MG [Suspect]
     Active Substance: LISINOPRIL
     Indication: HYPERTENSION
     Dosage: 10 MILLIGRAM
     Route: 048
     Dates: start: 20110805, end: 20110907

REACTIONS (15)
  - Dry mouth [Recovered/Resolved]
  - Atrial fibrillation [Unknown]
  - Muscle spasms [Not Recovered/Not Resolved]
  - Decreased appetite [Unknown]
  - Dry eye [Recovered/Resolved]
  - Oropharyngeal pain [Recovered/Resolved]
  - Diarrhoea [Recovered/Resolved]
  - Fibromyalgia [Not Recovered/Not Resolved]
  - Pharyngeal oedema [Recovered/Resolved]
  - Abdominal pain [Recovered/Resolved]
  - Rash erythematous [Unknown]
  - Cough [Unknown]
  - Sleep disorder [Unknown]
  - Arthralgia [Unknown]
  - Urinary incontinence [Unknown]
